FAERS Safety Report 11219765 (Version 10)
Quarter: 2015Q4

REPORT INFORMATION
  Report Type: Report from Study
  Country: US (occurrence: US)
  Receive Date: 20150625
  Receipt Date: 20151014
  Transmission Date: 20160304
  Serious: Yes (Hospitalization, Other)
  Sender: FDA-Public Use
  Company Number: US-GILEAD-2015-0160074

PATIENT
  Age: 46 Year
  Sex: Female
  Weight: 68.27 kg

DRUGS (4)
  1. REMODULIN [Suspect]
     Active Substance: TREPROSTINIL
     Indication: PULMONARY HYPERTENSION
     Dosage: 0.092 UG/KG, UNK
     Route: 042
     Dates: start: 20131211
  2. AMBRISENTAN [Suspect]
     Active Substance: AMBRISENTAN
     Indication: DRUG ABUSE
     Dosage: 5 MG, QD
     Route: 065
     Dates: start: 20110209
  3. REVATIO [Concomitant]
     Active Substance: SILDENAFIL CITRATE
  4. AMBRISENTAN [Suspect]
     Active Substance: AMBRISENTAN
     Indication: PULMONARY HYPERTENSION
     Dosage: 10 MG, QD
     Route: 065
     Dates: start: 20110208

REACTIONS (15)
  - Device breakage [Unknown]
  - Anaemia [Unknown]
  - Vomiting [Unknown]
  - Sepsis [Unknown]
  - Peripheral swelling [Unknown]
  - Central venous catheterisation [Unknown]
  - Hypotension [Unknown]
  - Catheter site extravasation [Unknown]
  - Cellulitis [Unknown]
  - Dyspnoea [Unknown]
  - Cellulitis [Unknown]
  - Fatigue [Unknown]
  - Laboratory test abnormal [Unknown]
  - Diarrhoea [Unknown]
  - Device dislocation [Unknown]

NARRATIVE: CASE EVENT DATE: 201506
